FAERS Safety Report 25906216 (Version 1)
Quarter: 2025Q4

REPORT INFORMATION
  Report Type: Spontaneous
  Country: US (occurrence: None)
  Receive Date: 20251009
  Receipt Date: 20251009
  Transmission Date: 20260118
  Serious: Yes (Hospitalization)
  Sender: FDA-CTU
  Company Number: None

PATIENT
  Age: 33 Year
  Sex: Female

DRUGS (1)
  1. METHYL SALICYLATE [Suspect]
     Active Substance: METHYL SALICYLATE

REACTIONS (2)
  - Accidental exposure to product [None]
  - Corneal abrasion [None]

NARRATIVE: CASE EVENT DATE: 20250930
